FAERS Safety Report 5379018-0 (Version None)
Quarter: 2007Q3

REPORT INFORMATION
  Report Type: 
  Country: None (occurrence: None)
  Receive Date: 20070705
  Receipt Date: 20070625
  Transmission Date: 20080115
  Serious: Yes (Hospitalization)
  Sender: FDA-Public Use
  Company Number: US-AMGEN-KDL231237

PATIENT
  Sex: Female
  Weight: 45.4 kg

DRUGS (5)
  1. PROCRIT [Suspect]
     Indication: MYELODYSPLASTIC SYNDROME
     Route: 058
     Dates: start: 19910101
  2. ARANESP [Suspect]
     Indication: MYELODYSPLASTIC SYNDROME
  3. TOPROL-XL [Concomitant]
     Dates: start: 20070401
  4. RYTHMOL [Concomitant]
     Dates: start: 20070401
  5. INDERAL [Concomitant]
     Route: 065

REACTIONS (10)
  - ADRENAL INSUFFICIENCY [None]
  - BLOOD PRESSURE INCREASED [None]
  - BLOOD SODIUM DECREASED [None]
  - ERYTHEMA [None]
  - FLUID RETENTION [None]
  - HAEMATOCRIT DECREASED [None]
  - HEADACHE [None]
  - JOINT SWELLING [None]
  - OEDEMA PERIPHERAL [None]
  - PRURITUS [None]
